FAERS Safety Report 8399229 (Version 3)
Quarter: 2012Q4

REPORT INFORMATION
  Report Type: Report from Study
  Country: GB (occurrence: GB)
  Receive Date: 20120210
  Receipt Date: 20121019
  Transmission Date: 20130627
  Serious: Yes (Hospitalization)
  Sender: FDA-Public Use
  Company Number: GB-JNJFOC-20120203771

PATIENT
  Age: 40 Year
  Sex: Male
  Weight: 103 kg

DRUGS (7)
  1. PALIPERIDONE PALMITATE [Suspect]
     Indication: SCHIZOPHRENIA
     Route: 030
     Dates: start: 20120109
  2. PALIPERIDONE PALMITATE [Suspect]
     Indication: SCHIZOPHRENIA
     Route: 030
     Dates: start: 20120214
  3. PALIPERIDONE PALMITATE [Suspect]
     Indication: SCHIZOPHRENIA
     Route: 030
     Dates: start: 20111006
  4. OLANZAPINE [Suspect]
     Indication: SLEEP DISORDER
     Route: 065
     Dates: start: 20120130
  5. OLANZAPINE [Suspect]
     Indication: SLEEP DISORDER
     Route: 065
  6. CITALOPRAM [Suspect]
     Indication: ANXIETY
     Route: 065
     Dates: start: 20120130
  7. CITALOPRAM [Suspect]
     Indication: ANXIETY
     Route: 065

REACTIONS (1)
  - Psychotic disorder [Recovered/Resolved]
